FAERS Safety Report 21208156 (Version 1)
Quarter: 2022Q3

REPORT INFORMATION
  Report Type: Report from Study
  Country: FR (occurrence: FR)
  Receive Date: 20220812
  Receipt Date: 20220812
  Transmission Date: 20221027
  Serious: Yes (Life-Threatening)
  Sender: FDA-Public Use
  Company Number: FR-NORDICGR-2022002025

PATIENT
  Age: 68 Year
  Sex: Female
  Weight: 84 kg

DRUGS (10)
  1. TRASYLOL [Suspect]
     Active Substance: APROTININ
     Indication: Mitral valve replacement
     Dosage: 300 MILLILITRE TOTAL LOADING DOSE 1 MILLION KIU
     Route: 042
     Dates: start: 20210901, end: 20210901
  2. TRASYLOL [Suspect]
     Active Substance: APROTININ
     Indication: Tricuspid valve repair
  3. WARFARIN [Concomitant]
     Active Substance: WARFARIN
     Indication: Anticoagulant therapy
     Dosage: UNK
  4. HEPARIN [Concomitant]
     Active Substance: HEPARIN SODIUM
     Indication: Anticoagulant therapy
     Dosage: UNK
  5. VITAMIN K1 [Concomitant]
     Active Substance: PHYTONADIONE
     Dosage: UNK
     Dates: start: 20210901
  6. HEPARIN [Concomitant]
     Active Substance: HEPARIN SODIUM
     Indication: Anticoagulant therapy
     Dosage: 45 KILO-INTERNATIONAL UNIT DURING SURGERY
     Dates: start: 20210901, end: 20210901
  7. HUMAN RED BLOOD CELL [Concomitant]
     Active Substance: HUMAN RED BLOOD CELL
     Indication: Transfusion
     Dosage: 605 MILLILITRE INTRAOPERATIVELY AND UP TO48 HOURS AFTER SURGERY
     Dates: start: 20210901
  8. PLATELETS [Concomitant]
     Active Substance: HUMAN PLATELET, ALLOGENIC
     Indication: Transfusion
     Dosage: 353 MILLILITRE INTRAOPERATIVELY AND UP TO 48 HOURS AFTER SURGERY
     Dates: start: 20210901
  9. FRESH FROZEN PLASMA [Concomitant]
     Active Substance: HUMAN PLASMA
     Indication: Transfusion
     Dosage: 1084 MILLILITRE INTRAOPERATIVELY AND UP TO  48 HOURS AFTER SURGERY
     Dates: start: 20210901
  10. PROTHROMBIN COMPLEX CONCENTRATE NOS [Concomitant]
     Active Substance: COAGULATION FACTOR IX HUMAN\COAGULATION FACTOR VII HUMAN\COAGULATION FACTOR X HUMAN\PROTHROMBIN
     Indication: Transfusion
     Dosage: 2000 MILLILITRE INTRAOPERATIVELY AND UP TO 48 HOURS AFTER SURGERY
     Dates: start: 20210901

REACTIONS (3)
  - Arterial thrombosis [Recovered/Resolved]
  - Off label use [Unknown]
  - Off label use [None]

NARRATIVE: CASE EVENT DATE: 20210901
